FAERS Safety Report 5220554-5 (Version None)
Quarter: 2007Q1

REPORT INFORMATION
  Report Type: 
  Country: None (occurrence: None)
  Receive Date: 20070126
  Receipt Date: 20070126
  Transmission Date: 20070707
  Serious: Yes (Life-Threatening, Hospitalization)
  Sender: FDA-Public Use
  Company Number: None

PATIENT
  Age: 39 Year
  Sex: Female
  Weight: 79.3795 kg

DRUGS (2)
  1. MIFEPREX [Suspect]
     Indication: ABORTION
     Dosage: 1 PILL  ONCE  PO
     Route: 048
     Dates: start: 20060104, end: 20060104
  2. MISOPROSTOL [Suspect]
     Indication: ABORTION
     Dosage: 4 PILLS  ONCE  VAG
     Route: 067
     Dates: start: 20060105, end: 20060105

REACTIONS (6)
  - BLOOD PRESSURE DECREASED [None]
  - DIZZINESS [None]
  - HAEMORRHAGE [None]
  - HEADACHE [None]
  - PAIN [None]
  - SEPSIS [None]
